FAERS Safety Report 4521395-4 (Version None)
Quarter: 2004Q4

REPORT INFORMATION
  Report Type: 
  Country: None (occurrence: None)
  Receive Date: 20041025
  Receipt Date: 20031112
  Transmission Date: 20050328
  Serious: Yes (Hospitalization, Disabling)
  Sender: FDA-Public Use
  Company Number: HQWYE063513NOV03

PATIENT
  Age: 53 Year
  Sex: Female
  Weight: 56.75 kg

DRUGS (3)
  1. PREMARIN [Suspect]
     Indication: MENOPAUSE
     Dosage: ORAL
     Route: 048
     Dates: start: 19970201, end: 19971201
  2. PREMPRO [Suspect]
  3. MONOPRIL [Concomitant]

REACTIONS (1)
  - DEEP VEIN THROMBOSIS [None]
